FAERS Safety Report 8975517 (Version 1)
Quarter: 2012Q4

REPORT INFORMATION
  Report Type: 
  Country: CA (occurrence: CA)
  Receive Date: 20121220
  Receipt Date: 20121220
  Transmission Date: 20130627
  Serious: No
  Sender: FDA-Public Use
  Company Number: PHHY2012CA117803

PATIENT

DRUGS (3)
  1. IMATINIB [Suspect]
     Indication: CHRONIC MYELOID LEUKAEMIA
  2. DASATINIB [Concomitant]
  3. NILOTINIB [Suspect]

REACTIONS (1)
  - Drug resistance [Unknown]
